FAERS Safety Report 11189388 (Version 1)
Quarter: 2015Q2

REPORT INFORMATION
  Report Type: Spontaneous
  Country: US (occurrence: None)
  Receive Date: 20150612
  Receipt Date: 20150612
  Transmission Date: 20150821
  Serious: Yes (Other)
  Sender: FDA-Public Use
  Company Number: None

PATIENT
  Age: 27 Year
  Sex: Male
  Weight: 108.86 kg

DRUGS (3)
  1. OXYCODONE [Suspect]
     Active Substance: OXYCODONE
     Indication: PROCEDURAL PAIN
     Dosage: 1 PILL Q4-6H ORAL
     Route: 048
     Dates: start: 20150514, end: 20150601
  2. OXYCODONE [Suspect]
     Active Substance: OXYCODONE
     Indication: WRIST SURGERY
     Dosage: 1 PILL Q4-6H ORAL
     Route: 048
     Dates: start: 20150514, end: 20150601
  3. FLONASE [Suspect]
     Active Substance: FLUTICASONE PROPIONATE
     Indication: SEASONAL ALLERGY
     Route: 045
     Dates: start: 20150301, end: 20150611

REACTIONS (3)
  - Aphasia [None]
  - Analgesic drug level below therapeutic [None]
  - Thinking abnormal [None]

NARRATIVE: CASE EVENT DATE: 20150516
